FAERS Safety Report 24676027 (Version 1)
Quarter: 2024Q4

REPORT INFORMATION
  Report Type: Spontaneous
  Country: JP (occurrence: JP)
  Receive Date: 20241128
  Receipt Date: 20241128
  Transmission Date: 20250114
  Serious: Yes (Death, Other)
  Sender: AMGEN
  Company Number: JP-KYOWAKIRIN-2024KK024105

PATIENT
  Age: 9 Decade
  Sex: Female

DRUGS (1)
  1. DARBEPOETIN ALFA [Suspect]
     Active Substance: DARBEPOETIN ALFA
     Indication: Myelodysplastic syndrome
     Dosage: 240 MICROGRAM
     Route: 058
     Dates: start: 20241017

REACTIONS (2)
  - Neoplasm malignant [Fatal]
  - Injection site pain [Unknown]

NARRATIVE: CASE EVENT DATE: 20241017
